FAERS Safety Report 24686985 (Version 1)
Quarter: 2024Q4

REPORT INFORMATION
  Report Type: Spontaneous
  Country: AU (occurrence: AU)
  Receive Date: 20241202
  Receipt Date: 20241202
  Transmission Date: 20250115
  Serious: Yes (Hospitalization, Other)
  Sender: AMNEAL
  Company Number: AU-AMNEAL PHARMACEUTICALS-2024-AMRX-04319

PATIENT

DRUGS (1)
  1. METHOTREXATE [Suspect]
     Active Substance: METHOTREXATE
     Indication: Rheumatoid arthritis
     Dosage: 20 MG WEEKLY (WITH ADEQUATE FOLIC ACID COVER)
     Route: 065

REACTIONS (4)
  - Paraneoplastic encephalomyelitis [Unknown]
  - Muscle rigidity [Unknown]
  - Monoclonal B-cell lymphocytosis [Unknown]
  - Myoclonus [Unknown]
